FAERS Safety Report 4359909-X (Version None)
Quarter: 2004Q2

REPORT INFORMATION
  Report Type: 
  Country: None (occurrence: None)
  Receive Date: 20040518
  Receipt Date: 20040518
  Transmission Date: 20050107
  Serious: Yes (Life-Threatening)
  Sender: FDA-Public Use
  Company Number: None

PATIENT
  Sex: Male
  Weight: 73.4827 kg

DRUGS (2)
  1. ABELCET [Suspect]
     Indication: ACUTE RESPIRATORY DISTRESS SYNDROME
     Dosage: 350 MG QD INTRAVENOUS
     Route: 042
     Dates: start: 20040121, end: 20040121
  2. ABELCET [Suspect]
     Indication: ANTIFUNGAL PROPHYLAXIS
     Dosage: 350 MG QD INTRAVENOUS
     Route: 042
     Dates: start: 20040121, end: 20040121

REACTIONS (4)
  - ABNORMAL BEHAVIOUR [None]
  - AGITATION [None]
  - HYPERTENSION [None]
  - TACHYPNOEA [None]
